FAERS Safety Report 17060355 (Version 1)
Quarter: 2019Q4

REPORT INFORMATION
  Report Type: Spontaneous
  Country: CN (occurrence: CN)
  Receive Date: 20191121
  Receipt Date: 20191121
  Transmission Date: 20200122
  Serious: Yes (Hospitalization)
  Sender: FDA-Public Use
  Company Number: NVSC2019CN042186

PATIENT
  Age: 32 Year
  Sex: Female
  Weight: 53.5 kg

DRUGS (4)
  1. TRILEPTAL [Suspect]
     Active Substance: OXCARBAZEPINE
     Indication: BIPOLAR DISORDER
     Dosage: 0.45 G, BID
     Route: 048
     Dates: start: 20191105, end: 20191110
  2. TRILEPTAL [Suspect]
     Active Substance: OXCARBAZEPINE
     Indication: DEPRESSION
     Dosage: 0.45 G, QD
     Route: 048
     Dates: start: 20191111, end: 20191111
  3. SHU SI [Concomitant]
     Active Substance: QUETIAPINE FUMARATE
     Indication: BIPOLAR DISORDER
     Dosage: 200 MG, QD
     Route: 048
     Dates: start: 20191029, end: 20191113
  4. SHU SI [Concomitant]
     Active Substance: QUETIAPINE FUMARATE
     Indication: DEPRESSION

REACTIONS (2)
  - Pruritus [Recovering/Resolving]
  - Rash [Recovered/Resolved]

NARRATIVE: CASE EVENT DATE: 20191111
